FAERS Safety Report 5990992-1 (Version None)
Quarter: 2008Q4

REPORT INFORMATION
  Report Type: 
  Country: None (occurrence: None)
  Receive Date: 20081211
  Receipt Date: 20081202
  Transmission Date: 20090506
  Serious: Yes (Hospitalization, Disabling)
  Sender: FDA-Public Use
  Company Number: FR-MERCK-0802FRA00059

PATIENT
  Age: 31 Year
  Sex: Female

DRUGS (2)
  1. VYTORIN [Suspect]
     Indication: TYPE IIA HYPERLIPIDAEMIA
     Route: 048
     Dates: start: 20070601
  2. ATORVASTATIN CALCIUM [Suspect]
     Indication: TYPE IIA HYPERLIPIDAEMIA
     Route: 048
     Dates: start: 20000101, end: 20060101

REACTIONS (3)
  - SUBCUTANEOUS NODULE [None]
  - TENDON DISORDER [None]
  - TENDON PAIN [None]
